FAERS Safety Report 20905514 (Version 1)
Quarter: 2022Q2

REPORT INFORMATION
  Report Type: Spontaneous
  Country: AT (occurrence: AT)
  Receive Date: 20220602
  Receipt Date: 20220602
  Transmission Date: 20220721
  Serious: Yes (Other)
  Sender: FDA-Public Use
  Company Number: AT-AMGEN-AUTSP2022093911

PATIENT
  Age: 23 Year
  Sex: Female

DRUGS (2)
  1. CINACALCET HYDROCHLORIDE [Suspect]
     Active Substance: CINACALCET HYDROCHLORIDE
     Indication: Hyperparathyroidism
     Dosage: UNK
     Route: 065
     Dates: start: 200604
  2. CINACALCET HYDROCHLORIDE [Suspect]
     Active Substance: CINACALCET HYDROCHLORIDE
     Indication: Hypercalcaemia

REACTIONS (5)
  - Parathyroid tumour malignant [Unknown]
  - Metastasis [Unknown]
  - Triple negative breast cancer [Unknown]
  - Drug ineffective [Unknown]
  - Gene mutation [Unknown]
